FAERS Safety Report 9655530 (Version 4)
Quarter: 2013Q4

REPORT INFORMATION
  Report Type: Report from Study
  Country: IT (occurrence: IT)
  Receive Date: 20131029
  Receipt Date: 20131218
  Transmission Date: 20140711
  Serious: Yes (Life-Threatening, Hospitalization, Other)
  Sender: FDA-Public Use
  Company Number: IT-ROCHE-1294636

PATIENT
  Age: 66 Year
  Sex: Male
  Weight: 75 kg

DRUGS (10)
  1. TRASTUZUMAB [Suspect]
     Indication: COLORECTAL CANCER METASTATIC
     Dosage: DATE PRIOR TO EVENT: 16/OCT/2013 (2 MG/KG, CYCLE 2 DAY 1)
     Route: 042
     Dates: start: 20130925
  2. LAPATINIB [Suspect]
     Indication: COLORECTAL CANCER METASTATIC
     Dosage: DATE OF LAST DOSE PRIOR TO EVENT: 23/OCT/2013 (1000 MG, CYCLE 2 DAY 8)
     Route: 048
     Dates: start: 20130925
  3. SIVASTIN [Concomitant]
     Indication: HYPERTRIGLYCERIDAEMIA
     Route: 048
  4. COVERSYL [Concomitant]
     Indication: HYPERTENSION
     Route: 048
  5. CARVASIN [Concomitant]
     Indication: CORONARY ARTERY INSUFFICIENCY
     Route: 048
     Dates: start: 2006
  6. DIBASE [Concomitant]
     Route: 048
  7. MEDROL [Concomitant]
     Route: 048
  8. LANSOPRAZOLE [Concomitant]
     Route: 048
  9. CONGESCOR [Concomitant]
     Indication: HYPERTENSION
     Route: 048
  10. CARDIOASPIRIN [Concomitant]
     Route: 048
     Dates: start: 2006, end: 20131023

REACTIONS (1)
  - Acute myocardial infarction [Recovered/Resolved]
